FAERS Safety Report 11088008 (Version 2)
Quarter: 2015Q2

REPORT INFORMATION
  Report Type: Spontaneous
  Country: PL (occurrence: PL)
  Receive Date: 20150504
  Receipt Date: 20150516
  Transmission Date: 20150821
  Serious: Yes (Other)
  Sender: FDA-Public Use
  Company Number: PHHY2015PL050782

PATIENT
  Age: 30 Year
  Sex: Female

DRUGS (4)
  1. CARBAMAZEPINE. [Suspect]
     Active Substance: CARBAMAZEPINE
     Indication: PSYCHOTIC DISORDER
     Dosage: 800 MG, QD
     Route: 065
  2. PERAZINE [Concomitant]
     Active Substance: PERAZINE
     Indication: PSYCHOTIC DISORDER
     Dosage: 100 MG, QD
     Route: 065
  3. ARIPIPRAZOLE. [Suspect]
     Active Substance: ARIPIPRAZOLE
     Indication: PSYCHOTIC DISORDER
     Dosage: 30 MG, QD
     Route: 065
  4. ARIPIPRAZOLE. [Suspect]
     Active Substance: ARIPIPRAZOLE
     Dosage: 25 MG
     Route: 065

REACTIONS (6)
  - Breath odour [Recovering/Resolving]
  - Gingival pain [Recovering/Resolving]
  - Aptyalism [Recovered/Resolved]
  - Decreased appetite [Recovering/Resolving]
  - Salivary hypersecretion [Recovering/Resolving]
  - Dry throat [Recovering/Resolving]
